FAERS Safety Report 11168988 (Version 4)
Quarter: 2015Q4

REPORT INFORMATION
  Report Type: Report from Study
  Country: US (occurrence: US)
  Receive Date: 20150605
  Receipt Date: 20151107
  Transmission Date: 20160304
  Serious: Yes (Death)
  Sender: FDA-Public Use
  Company Number: US-AMGEN-USASL2015054722

PATIENT
  Age: 62 Year
  Sex: Female
  Weight: 72.2 kg

DRUGS (24)
  1. ACIDOPHILUS [Concomitant]
     Active Substance: LACTOBACILLUS ACIDOPHILUS
     Dosage: 500 MILLION CELL TAB, 1 P.O. Q. DAY VERIFY
     Route: 048
     Dates: start: 20120228
  2. ELMIRON [Concomitant]
     Active Substance: PENTOSAN POLYSULFATE SODIUM
     Dosage: 100 MG, 1 P.O. THREE TIMES A DAY (TID)
     Route: 048
     Dates: start: 20140626
  3. LASIX [Concomitant]
     Active Substance: FUROSEMIDE
     Dosage: 20 MG, 1 P.O. Q. DAY VERIFY
     Route: 048
     Dates: start: 20120228
  4. LEVAQUIN [Concomitant]
     Active Substance: LEVOFLOXACIN
     Dosage: 250 MG, 1 P.O. DAILY FOR 14 DAYS.
     Route: 048
     Dates: start: 20150211
  5. COUMADIN [Concomitant]
     Active Substance: WARFARIN SODIUM
     Dosage: 3 MG, TAKE AS DIRECTED
     Dates: start: 20140630
  6. COUMADIN [Concomitant]
     Active Substance: WARFARIN SODIUM
     Dosage: 3 MG, TAKE AS DIRECTED
     Dates: start: 20150206
  7. CREON [Concomitant]
     Active Substance: PANCRELIPASE AMYLASE\PANCRELIPASE LIPASE\PANCRELIPASE PROTEASE
     Dosage: 12000-38000-60000 UNIT, 2 BEFORE MEALS AND 1 BEFORE SNACKS
     Dates: start: 20140602
  8. DEXAMETHASONE. [Concomitant]
     Active Substance: DEXAMETHASONE
     Dosage: 1 MG, 4 TABS BY MOUTH EVERY 12 HOURS
     Route: 048
     Dates: start: 20150416
  9. NEURONTIN [Concomitant]
     Active Substance: GABAPENTIN
     Dosage: 300 MG, TAKE ONE CAPSULE BY MOUTH IN THE MORNING AND AT LUNCH, AND 2 CAPSULES IN THE EVENING
     Route: 048
     Dates: start: 20140825
  10. LOVAZA [Concomitant]
     Active Substance: OMEGA-3-ACID ETHYL ESTERS
     Dosage: 1 G, 2 PO BID
     Route: 048
     Dates: start: 20120228
  11. PROCRIT [Suspect]
     Active Substance: ERYTHROPOIETIN
     Indication: PRODUCT USED FOR UNKNOWN INDICATION
     Dosage: UNK
     Route: 065
  12. NEUPOGEN [Concomitant]
     Active Substance: FILGRASTIM
     Indication: NEUTROPHIL COUNT ABNORMAL
     Dosage: 480 MCG, UNK
     Dates: start: 20150414
  13. TAMSULOSIN [Concomitant]
     Active Substance: TAMSULOSIN
     Dosage: 0.4 MG, 1 P.O. Q. DAY
     Route: 048
     Dates: start: 20140626
  14. TYLENOL [Concomitant]
     Active Substance: ACETAMINOPHEN
     Dosage: 325 MG, PRN ONLY
     Dates: start: 20120228
  15. GABAPENTIN. [Concomitant]
     Active Substance: GABAPENTIN
     Dosage: 300 MG, FOUR TABS PO PER DAY (ONE IN AM/ONE AT LUNCH AND 2 AT BEDTIME)
     Route: 048
     Dates: start: 20150106
  16. COUMADIN [Concomitant]
     Active Substance: WARFARIN SODIUM
     Dosage: 3 MG, 1 P.O. Q. DAY
     Route: 048
     Dates: start: 20140515
  17. KLOR-CON M20 [Concomitant]
     Active Substance: POTASSIUM CHLORIDE
     Dosage: TAKE 1 TABLET BY MOUTH EVERY DAY
     Route: 048
     Dates: start: 20140915
  18. PRILOSEC [Concomitant]
     Active Substance: OMEPRAZOLE MAGNESIUM
     Dosage: 40 MG, 1 P.O. Q. DAY
     Route: 048
     Dates: start: 20120326
  19. WARFARIN [Concomitant]
     Active Substance: WARFARIN
     Dosage: 3 MG, CURRENTLY ALTERNATING 2 AND 3 MG DAILY
     Dates: start: 20150416
  20. MAGNESIUM OXIDE. [Concomitant]
     Active Substance: MAGNESIUM OXIDE
     Dosage: 400 MG, TAKE 1 TABLET BY MOUTH EVERY DAY
     Route: 048
     Dates: start: 20141204
  21. ALLOPURINOL. [Concomitant]
     Active Substance: ALLOPURINOL
     Dosage: 100 MG, 1 P.O. Q. DAY VERIFY
     Route: 048
     Dates: start: 20120228
  22. SYNTHROID [Concomitant]
     Active Substance: LEVOTHYROXINE SODIUM
     Dosage: 25 MCG, 1 P. O. Q. DAY VERIFY
     Route: 048
     Dates: start: 20120228
  23. VELCADE [Concomitant]
     Active Substance: BORTEZOMIB
     Indication: PLASMA CELL MYELOMA
     Dosage: 2.3 MG, UNK
     Dates: start: 20150514
  24. WARFARIN [Concomitant]
     Active Substance: WARFARIN
     Dosage: 2 MG, CURRENTLY ALTERNATING 2 AND 3 MG DAILY
     Dates: start: 20150416

REACTIONS (1)
  - Plasma cell myeloma [Fatal]

NARRATIVE: CASE EVENT DATE: 20120308
